FAERS Safety Report 19310204 (Version 1)
Quarter: 2021Q2

REPORT INFORMATION
  Report Type: Spontaneous
  Country: AT (occurrence: AT)
  Receive Date: 20210526
  Receipt Date: 20210526
  Transmission Date: 20210717
  Serious: Yes (Hospitalization)
  Sender: FDA-Public Use
  Company Number: AT-ALLERGAN-2120242US

PATIENT
  Sex: Female
  Weight: 91 kg

DRUGS (2)
  1. XYDALBA [Suspect]
     Active Substance: DALBAVANCIN HYDROCHLORIDE
     Indication: STAPHYLOCOCCAL INFECTION
     Dosage: UNK, SINGLE
     Route: 065
     Dates: start: 20210403, end: 20210403
  2. XYDALBA [Suspect]
     Active Substance: DALBAVANCIN HYDROCHLORIDE
     Dosage: UNK, SINGLE
     Route: 065
     Dates: start: 20210323, end: 20210323

REACTIONS (5)
  - Abscess [Unknown]
  - Off label use [Unknown]
  - Staphylococcus test positive [Unknown]
  - Drug ineffective [Unknown]
  - Bacteraemia [Unknown]

NARRATIVE: CASE EVENT DATE: 20210517
